FAERS Safety Report 7274977-3 (Version None)
Quarter: 2011Q1

REPORT INFORMATION
  Report Type: 
  Country: None (occurrence: None)
  Receive Date: 20110203
  Receipt Date: 20110203
  Transmission Date: 20110831
  Serious: No
  Sender: FDA-Public Use
  Company Number: None

PATIENT
  Sex: Female

DRUGS (1)
  1. ALCOHOL PREP PDS IN BETASERON 0.3MG KIT BAYER PHARMA [Suspect]
     Dosage: ONCE TOPICALLY
     Route: 061
     Dates: start: 20101230

REACTIONS (1)
  - APPLICATION SITE RASH [None]
